FAERS Safety Report 5297852-2 (Version None)
Quarter: 2007Q1

REPORT INFORMATION
  Report Type: 
  Country: None (occurrence: None)
  Receive Date: 20070201
  Receipt Date: 20061030
  Transmission Date: 20070707
  Serious: No
  Sender: FDA-Public Use
  Company Number: 2006PV024228

PATIENT
  Age: 85 Year
  Sex: Male

DRUGS (15)
  1. BYETTA [Suspect]
     Indication: DIABETES MELLITUS NON-INSULIN-DEPENDENT
     Dosage: 5 MCG, BID, SC
     Route: 058
     Dates: start: 20061024
  2. INSULIN [Concomitant]
  3. METFORMIN HCL [Concomitant]
  4. GLYNASE [Concomitant]
  5. CORGARD [Concomitant]
  6. ALLEGRA [Concomitant]
  7. PRINIVIL [Concomitant]
  8. ADVAIR DISKUS 100/50 [Concomitant]
  9. K-DUR 10 [Concomitant]
  10. PROCARDIA XL [Concomitant]
  11. ZOCOR [Concomitant]
  12. NASACORT [Concomitant]
  13. METHOTREXATE [Concomitant]
  14. LASIX [Concomitant]
  15. PRECOSE [Concomitant]

REACTIONS (3)
  - BLOOD GLUCOSE FLUCTUATION [None]
  - DECREASED APPETITE [None]
  - HEADACHE [None]
